FAERS Safety Report 20328253 (Version 2)
Quarter: 2022Q1

REPORT INFORMATION
  Report Type: Spontaneous
  Country: CA (occurrence: CA)
  Receive Date: 20220112
  Receipt Date: 20220222
  Transmission Date: 20220423
  Serious: Yes (Other)
  Sender: FDA-Public Use
  Company Number: CA-PFIZER INC-2021069234

PATIENT
  Age: 37 Year
  Sex: Male
  Weight: 82 kg

DRUGS (3)
  1. RUXIENCE [Suspect]
     Active Substance: RITUXIMAB-PVVR
     Indication: Ocular pemphigoid
     Dosage: 1 G
     Route: 042
     Dates: start: 20201223, end: 20201223
  2. RUXIENCE [Suspect]
     Active Substance: RITUXIMAB-PVVR
     Dosage: 1000 MG DOSE 2
     Route: 042
     Dates: start: 20210225, end: 20210225
  3. RUXIENCE [Suspect]
     Active Substance: RITUXIMAB-PVVR
     Dosage: 1000 MG DAY 1AND 15 (EVERY 6 MONTHS)
     Route: 042
     Dates: start: 20210623, end: 20210707

REACTIONS (8)
  - Keratoplasty [Unknown]
  - Off label use [Unknown]
  - Off label use [Unknown]
  - Intentional product use issue [Unknown]
  - Inappropriate schedule of product administration [Unknown]
  - Weight decreased [Unknown]
  - Eye inflammation [Unknown]
  - Oral disorder [Unknown]

NARRATIVE: CASE EVENT DATE: 20210623
